FAERS Safety Report 6462271-X (Version None)
Quarter: 2009Q4

REPORT INFORMATION
  Report Type: 
  Country: None (occurrence: None)
  Receive Date: 20091130
  Receipt Date: 20091028
  Transmission Date: 20100525
  Serious: No
  Sender: FDA-Public Use
  Company Number: US-BAYER-200937665NA

PATIENT
  Age: 45 Year
  Sex: Female

DRUGS (1)
  1. AVELOX [Suspect]
     Indication: UPPER RESPIRATORY TRACT INFECTION
     Dates: start: 20080101

REACTIONS (3)
  - DIARRHOEA [None]
  - SKIN BURNING SENSATION [None]
  - VOMITING [None]
